FAERS Safety Report 8611565-8 (Version None)
Quarter: 2012Q3

REPORT INFORMATION
  Report Type: 
  Country: None (occurrence: None)
  Receive Date: 20120822
  Receipt Date: 20120815
  Transmission Date: 20120928
  Serious: Yes (Other)
  Sender: FDA-Public Use
  Company Number: PHHY2012IL070730

PATIENT
  Age: 68 Year
  Sex: Female

DRUGS (1)
  1. ALENDRONATE SODIUM [Suspect]
     Dosage: 70 MG, PER WEEK
     Route: 048

REACTIONS (8)
  - PARAESTHESIA [None]
  - SWELLING [None]
  - TRIGEMINAL NEURALGIA [None]
  - GINGIVAL ERYTHEMA [None]
  - PAIN IN JAW [None]
  - GINGIVAL SWELLING [None]
  - HYPOAESTHESIA [None]
  - OSTEONECROSIS OF JAW [None]
